FAERS Safety Report 7455850-4 (Version None)
Quarter: 2011Q2

REPORT INFORMATION
  Report Type: 
  Country: None (occurrence: None)
  Receive Date: 20110503
  Receipt Date: 20110429
  Transmission Date: 20111010
  Serious: Yes (Hospitalization)
  Sender: FDA-Public Use
  Company Number: A0840332A

PATIENT
  Sex: Female
  Weight: 95 kg

DRUGS (9)
  1. ZOCOR [Concomitant]
  2. COREG [Concomitant]
  3. LASIX [Concomitant]
  4. GLIMEPIRIDE [Concomitant]
  5. AVANDAMET [Suspect]
     Indication: DIABETES MELLITUS
     Route: 048
  6. LEXAPRO [Concomitant]
  7. INSPRA [Concomitant]
  8. BIDIL [Concomitant]
  9. AVANDIA [Suspect]
     Indication: DIABETES MELLITUS
     Dosage: 4MG UNKNOWN
     Route: 048
     Dates: start: 20050101

REACTIONS (2)
  - CARDIAC FAILURE CONGESTIVE [None]
  - VENTRICULAR TACHYCARDIA [None]
